FAERS Safety Report 4404120-7 (Version None)
Quarter: 2004Q3

REPORT INFORMATION
  Report Type: 
  Country: None (occurrence: None)
  Receive Date: 20040722
  Receipt Date: 20040423
  Transmission Date: 20050211
  Serious: No
  Sender: FDA-Public Use
  Company Number: US-BRISTOL-MYERS SQUIBB COMPANY-12570560

PATIENT
  Sex: Male

DRUGS (2)
  1. AMIKACIN [Suspect]
     Indication: STEM CELL TRANSPLANT
     Dosage: HIGH DOSES
     Dates: start: 20030520
  2. PARAPLATIN [Suspect]
     Indication: NEUROBLASTOMA
     Dosage: HIGH DOSES
     Dates: start: 20030520

REACTIONS (1)
  - HYPOACUSIS [None]
